FAERS Safety Report 23641584 (Version 1)
Quarter: 2024Q1

REPORT INFORMATION
  Report Type: Report from Study
  Country: ES (occurrence: ES)
  Receive Date: 20240318
  Receipt Date: 20240318
  Transmission Date: 20240410
  Serious: Yes (Hospitalization)
  Sender: FDA-Public Use
  Company Number: None

PATIENT
  Age: 38 Year
  Sex: Male

DRUGS (3)
  1. ETOPOSIDE [Suspect]
     Active Substance: ETOPOSIDE
     Indication: Follicular lymphoma
     Dosage: TIME INTERVAL: CYCLICAL: 282 MG 1 CYCLE
     Route: 042
     Dates: start: 20221128, end: 20221128
  2. IFOSFAMIDE [Suspect]
     Active Substance: IFOSFAMIDE
     Indication: Follicular lymphoma
     Dosage: TIME INTERVAL: CYCLICAL: 4700 MG 1 CYCLE,(337A)
     Route: 042
     Dates: start: 20221128, end: 20221128
  3. EPIRUBICIN [Suspect]
     Active Substance: EPIRUBICIN
     Indication: Follicular lymphoma
     Dosage: TIME INTERVAL: CYCLICAL: 188 MG 1 CYCLE
     Route: 042
     Dates: start: 20221128, end: 20221128

REACTIONS (1)
  - Neutropenia [Recovering/Resolving]

NARRATIVE: CASE EVENT DATE: 20221207
